FAERS Safety Report 5199959-7 (Version None)
Quarter: 2007Q1

REPORT INFORMATION
  Report Type: 
  Country: None (occurrence: None)
  Receive Date: 20070103
  Receipt Date: 20061220
  Transmission Date: 20070707
  Serious: Yes (Hospitalization)
  Sender: FDA-Public Use
  Company Number: CERZ-11406

PATIENT
  Age: 56 Year
  Sex: Male
  Weight: 84.09 kg

DRUGS (1)
  1. CEREZYME [Suspect]
     Indication: GAUCHER'S DISEASE
     Dosage: 28 U/KG Q3WKS IV
     Route: 042
     Dates: start: 19980526

REACTIONS (1)
  - ARTHRITIS [None]
